FAERS Safety Report 20824893 (Version 1)
Quarter: 2022Q2

REPORT INFORMATION
  Report Type: Spontaneous
  Country: US (occurrence: None)
  Receive Date: 20220513
  Receipt Date: 20220513
  Transmission Date: 20220721
  Serious: No
  Sender: FDA-Public Use
  Company Number: US-Hikma Pharmaceuticals USA Inc.-US-H14001-22-00697

PATIENT
  Age: 60 Year
  Sex: Female

DRUGS (2)
  1. PREDNISONE [Suspect]
     Active Substance: PREDNISONE
     Indication: Congenital syphilitic osteochondritis
     Dosage: UNKNOWN
     Route: 065
     Dates: start: 20211122
  2. RITUXIMAB [Suspect]
     Active Substance: RITUXIMAB
     Indication: Congenital syphilitic osteochondritis
     Dosage: UNKNOWN
     Route: 065

REACTIONS (2)
  - Anxiety [Unknown]
  - Depression [Unknown]
